FAERS Safety Report 16191787 (Version 1)
Quarter: 2019Q2

REPORT INFORMATION
  Report Type: Spontaneous
  Country: US (occurrence: US)
  Receive Date: 20190412
  Receipt Date: 20190412
  Transmission Date: 20190711
  Serious: No
  Sender: FDA-Public Use
  Company Number: US-ASTRAZENECA-2019SE43622

PATIENT
  Sex: Female
  Weight: 93 kg

DRUGS (1)
  1. SYMBICORT [Suspect]
     Active Substance: BUDESONIDE\FORMOTEROL FUMARATE DIHYDRATE
     Indication: ASTHMA
     Dosage: 160/4.5 MCG, 2 PUFFS BID
     Route: 055

REACTIONS (7)
  - Product dose omission [Not Recovered/Not Resolved]
  - Intentional product misuse [Unknown]
  - Wheezing [Unknown]
  - Bronchitis [Unknown]
  - Visual impairment [Unknown]
  - Hypersensitivity [Unknown]
  - Device issue [Unknown]
